FAERS Safety Report 14384718 (Version 1)
Quarter: 2018Q1

REPORT INFORMATION
  Report Type: Report from Study
  Country: FR (occurrence: FR)
  Receive Date: 20180115
  Receipt Date: 20180115
  Transmission Date: 20180509
  Serious: Yes (Hospitalization, Other)
  Sender: FDA-Public Use
  Company Number: FR-JNJFOC-20170321571

PATIENT
  Age: 60 Year
  Sex: Male
  Weight: 89 kg

DRUGS (7)
  1. CISPLATIN. [Concomitant]
     Active Substance: CISPLATIN
     Indication: B-CELL LYMPHOMA
     Route: 065
     Dates: start: 20170313, end: 20170406
  2. IBRUTINIB [Suspect]
     Active Substance: IBRUTINIB
     Indication: B-CELL LYMPHOMA
     Route: 048
     Dates: start: 20170321
  3. IBRUTINIB [Suspect]
     Active Substance: IBRUTINIB
     Indication: B-CELL LYMPHOMA
     Route: 048
     Dates: start: 20170317, end: 20170319
  4. CYTARABINE. [Concomitant]
     Active Substance: CYTARABINE
     Indication: B-CELL LYMPHOMA
     Route: 065
     Dates: start: 20170313, end: 20170406
  5. RITUXIMAB. [Concomitant]
     Active Substance: RITUXIMAB
     Indication: B-CELL LYMPHOMA
     Route: 065
     Dates: start: 20170313, end: 20170406
  6. DEXAMETHASONE. [Concomitant]
     Active Substance: DEXAMETHASONE
     Indication: B-CELL LYMPHOMA
     Route: 065
     Dates: start: 20170313, end: 20170406
  7. IBRUTINIB [Suspect]
     Active Substance: IBRUTINIB
     Indication: B-CELL LYMPHOMA
     Route: 048

REACTIONS (4)
  - Hyponatraemia [Recovered/Resolved]
  - Acute kidney injury [Recovered/Resolved]
  - Febrile bone marrow aplasia [Recovered/Resolved]
  - General physical health deterioration [Recovered/Resolved]

NARRATIVE: CASE EVENT DATE: 20170320
